FAERS Safety Report 4279650-1 (Version None)
Quarter: 2004Q1

REPORT INFORMATION
  Report Type: 
  Country: None (occurrence: None)
  Receive Date: 20040123
  Receipt Date: 20040113
  Transmission Date: 20041129
  Serious: Yes (Death, Hospitalization)
  Sender: FDA-Public Use
  Company Number: US-SHR-04-019785

PATIENT
  Age: 63 Year
  Sex: Male

DRUGS (1)
  1. BETASERON [Suspect]
     Indication: MULTIPLE SCLEROSIS
     Dosage: 8 MIU, EVERY 2 D, SUBCUTANEOUS
     Route: 058
     Dates: start: 20000101, end: 20040109

REACTIONS (1)
  - MYOCARDIAL INFARCTION [None]
